FAERS Safety Report 9388047 (Version 2)
Quarter: 2013Q3

REPORT INFORMATION
  Report Type: Spontaneous
  Country: DE (occurrence: None)
  Receive Date: 20130703
  Receipt Date: 20130712
  Transmission Date: 20140515
  Serious: Yes (Other)
  Sender: FDA-Public Use
  Company Number: 1306-844

PATIENT
  Age: 70 Year
  Sex: Female
  Weight: 67.2 kg

DRUGS (1)
  1. EYLEA [Suspect]
     Indication: AGE-RELATED MACULAR DEGENERATION
     Dates: start: 20130319

REACTIONS (4)
  - Nausea [None]
  - Vertigo [None]
  - Vomiting [None]
  - Vertigo CNS origin [None]
